FAERS Safety Report 19259482 (Version 3)
Quarter: 2021Q3

REPORT INFORMATION
  Report Type: Spontaneous
  Country: US (occurrence: US)
  Receive Date: 20210514
  Receipt Date: 20210715
  Transmission Date: 20211014
  Serious: Yes (Life-Threatening, Hospitalization, Other)
  Sender: FDA-Public Use
  Company Number: US-PFIZER INC-2021499435

PATIENT
  Age: 77 Year
  Sex: Male
  Weight: 112.04 kg

DRUGS (1)
  1. TESTOSTERONE CIPIONATE [Suspect]
     Active Substance: TESTOSTERONE
     Indication: BLOOD TESTOSTERONE DECREASED
     Dosage: 200 MG/ ML IN A 10 ML MULTI?DOSE VIAL; 1 ML PER DOSE WEEKLY IN HIS THIGH
     Route: 030

REACTIONS (11)
  - Diabetes mellitus [Unknown]
  - Malabsorption from administration site [Unknown]
  - Injection site discomfort [Not Recovered/Not Resolved]
  - Product quality issue [Unknown]
  - Poor quality product administered [Unknown]
  - Lung disorder [Unknown]
  - Road traffic accident [Unknown]
  - Ulcer haemorrhage [Recovering/Resolving]
  - Cardiac disorder [Unknown]
  - Injection site pain [Not Recovered/Not Resolved]
  - Injection site mass [Not Recovered/Not Resolved]

NARRATIVE: CASE EVENT DATE: 202101
